FAERS Safety Report 23820985 (Version 4)
Quarter: 2024Q4

REPORT INFORMATION
  Report Type: Other
  Country: US (occurrence: US)
  Receive Date: 20240506
  Receipt Date: 20241028
  Transmission Date: 20250115
  Serious: Yes (Other)
  Sender: TRAVERE THERAPEUTICS
  Company Number: US-TRAVERE-2024TVT00420

PATIENT
  Sex: Female

DRUGS (3)
  1. FILSPARI [Suspect]
     Active Substance: SPARSENTAN
     Indication: IgA nephropathy
     Route: 048
  2. FILSPARI [Suspect]
     Active Substance: SPARSENTAN
     Route: 048
     Dates: start: 202404
  3. FILSPARI [Suspect]
     Active Substance: SPARSENTAN
     Route: 048

REACTIONS (2)
  - Renal disorder [Unknown]
  - Protein urine present [Unknown]
